FAERS Safety Report 11297476 (Version 1)
Quarter: 2015Q3

REPORT INFORMATION
  Report Type: Spontaneous
  Country: US (occurrence: US)
  Receive Date: 20150722
  Receipt Date: 20150722
  Transmission Date: 20151125
  Serious: No
  Sender: FDA-Public Use
  Company Number: US-ELI_LILLY_AND_COMPANY-US200806004946

PATIENT
  Sex: Male

DRUGS (3)
  1. HUMAN INSULIN [Suspect]
     Active Substance: INSULIN HUMAN
     Dates: end: 200803
  2. HUMULIN R [Suspect]
     Active Substance: INSULIN HUMAN
     Route: 058
     Dates: start: 200803
  3. HUMATROPE [Suspect]
     Active Substance: SOMATROPIN
     Dates: start: 2001

REACTIONS (3)
  - Weight increased [Not Recovered/Not Resolved]
  - Blood glucose decreased [Recovered/Resolved]
  - Limb injury [Recovered/Resolved]

NARRATIVE: CASE EVENT DATE: 200803
